FAERS Safety Report 7930463-6 (Version None)
Quarter: 2011Q4

REPORT INFORMATION
  Report Type: 
  Country: None (occurrence: None)
  Receive Date: 20111121
  Receipt Date: 20111114
  Transmission Date: 20120403
  Serious: Yes (Life-Threatening)
  Sender: FDA-Public Use
  Company Number: FR-ROCHE-1012765

PATIENT
  Sex: Female

DRUGS (5)
  1. LANTUS [Concomitant]
     Route: 065
  2. VALSARTAN [Concomitant]
     Route: 065
  3. BISOPROLOL FUMARATE [Suspect]
     Indication: HYPERTENSION
     Route: 048
  4. CLONAZEPAM [Suspect]
     Indication: PRODUCT USED FOR UNKNOWN INDICATION
     Route: 048
  5. ESIDRIX [Concomitant]
     Route: 065

REACTIONS (1)
  - CARDIOGENIC SHOCK [None]
